FAERS Safety Report 12827935 (Version 1)
Quarter: 2016Q4

REPORT INFORMATION
  Report Type: Report from Study
  Country: JP (occurrence: JP)
  Receive Date: 20161007
  Receipt Date: 20161007
  Transmission Date: 20170207
  Serious: Yes (Hospitalization)
  Sender: FDA-Public Use
  Company Number: ALCN2011JP001052

PATIENT
  Age: 67 Year
  Sex: Male
  Weight: 67.1 kg

DRUGS (5)
  1. DIFLUPREDNATE [Suspect]
     Active Substance: DIFLUPREDNATE
     Indication: MACULAR OEDEMA
     Dosage: 1 GTT, QID
     Route: 047
     Dates: start: 20101221, end: 20110315
  2. MEVALOTIN [Concomitant]
     Active Substance: PRAVASTATIN SODIUM
  3. BASEN [Concomitant]
     Active Substance: VOGLIBOSE
  4. ACTOS [Concomitant]
     Active Substance: PIOGLITAZONE HYDROCHLORIDE
  5. AMARYL [Concomitant]
     Active Substance: GLIMEPIRIDE

REACTIONS (1)
  - Keratitis bacterial [Recovered/Resolved]

NARRATIVE: CASE EVENT DATE: 20110315
